FAERS Safety Report 5071721-5 (Version None)
Quarter: 2006Q3

REPORT INFORMATION
  Report Type: 
  Country: None (occurrence: None)
  Receive Date: 20060801
  Receipt Date: 20060721
  Transmission Date: 20061208
  Serious: Yes (Disabling, Other)
  Sender: FDA-Public Use
  Company Number: 2006090776

PATIENT
  Age: 63 Year
  Sex: Male

DRUGS (1)
  1. LIPITOR [Suspect]
     Indication: BLOOD CHOLESTEROL
     Dosage: 10 MG (10 MG,1 IN 1 D), ORAL
     Route: 048
     Dates: start: 20050322, end: 20050515

REACTIONS (10)
  - ARTHROPATHY [None]
  - BLINDNESS UNILATERAL [None]
  - BLOOD TEST ABNORMAL [None]
  - HEADACHE [None]
  - MUSCULAR WEAKNESS [None]
  - MYALGIA [None]
  - POLYARTHRITIS [None]
  - RED BLOOD CELL SEDIMENTATION RATE INCREASED [None]
  - RHEUMATOID ARTHRITIS [None]
  - TEMPORAL ARTERITIS [None]
